FAERS Safety Report 10374982 (Version 1)
Quarter: 2014Q1

REPORT INFORMATION
  Report Type: Spontaneous
  Country: US (occurrence: None)
  Receive Date: 20140306
  Receipt Date: 20140306
  Transmission Date: 20141002
  Serious: Yes (Other)
  Sender: FDA-Public Use
  Company Number: 163-21880-13072546

PATIENT
  Age: 67 Year
  Sex: Female
  Weight: 60.8 kg

DRUGS (6)
  1. REVLIMID [Suspect]
     Indication: PLASMA CELL MYELOMA
     Route: 048
     Dates: start: 201306
  2. ASPIRIN (ACETYLSALICYLIC ACID) (CHEWABLE TABLET) [Concomitant]
  3. EFFEXOR XR (VENLAFAXINE HYDROCHLORIDE) (CAPSULES) [Concomitant]
  4. AMBIEN (ZOLPIDEM TARTRATE) (TABLETS) [Concomitant]
  5. DEXAMETHASONE (DEXAMETHASONE) (TABLETS) [Concomitant]
  6. STOOL SOFTENER (DOCUSATE SODIUM) [Concomitant]

REACTIONS (5)
  - Red blood cell count decreased [None]
  - Nerve compression [None]
  - Rash pruritic [None]
  - Nasopharyngitis [None]
  - Pain in extremity [None]
